FAERS Safety Report 25723517 (Version 3)
Quarter: 2025Q4

REPORT INFORMATION
  Report Type: Spontaneous
  Country: AU (occurrence: AU)
  Receive Date: 20250825
  Receipt Date: 20251020
  Transmission Date: 20260117
  Serious: Yes (Other)
  Sender: NOVO NORDISK
  Company Number: AU-NOVOPROD-1503145

PATIENT
  Age: 62 Year
  Sex: Female

DRUGS (1)
  1. WEGOVY [Suspect]
     Active Substance: SEMAGLUTIDE
     Indication: Product used for unknown indication
     Dosage: 0.5 MG
     Dates: start: 20250101

REACTIONS (3)
  - Multiple sclerosis [Unknown]
  - Pain [Recovered/Resolved]
  - Dysaesthesia [Recovered/Resolved]
